FAERS Safety Report 10393403 (Version 1)
Quarter: 2014Q3

REPORT INFORMATION
  Report Type: Report from Study
  Country: MX (occurrence: MX)
  Receive Date: 20140819
  Receipt Date: 20140819
  Transmission Date: 20150326
  Serious: Yes (Death)
  Sender: FDA-Public Use
  Company Number: PHHY2014MX103001

PATIENT
  Age: 82 Year
  Sex: Female

DRUGS (2)
  1. EXELON PATCH [Suspect]
     Active Substance: RIVASTIGMINE
     Indication: DEMENTIA ALZHEIMER^S TYPE
     Dosage: 4.6 MG, DAILY
     Route: 062
     Dates: start: 201312
  2. ERANZ [Concomitant]
     Active Substance: DONEPEZIL HYDROCHLORIDE
     Indication: DEMENTIA ALZHEIMER^S TYPE
     Dosage: 1 UKN, DAILY
     Dates: start: 201312

REACTIONS (4)
  - Productive cough [Unknown]
  - Lung disorder [Fatal]
  - Respiratory disorder [Fatal]
  - Memory impairment [Unknown]

NARRATIVE: CASE EVENT DATE: 201407
